FAERS Safety Report 10167959 (Version 2)
Quarter: 2014Q2

REPORT INFORMATION
  Report Type: Report from Study
  Country: US (occurrence: US)
  Receive Date: 20140512
  Receipt Date: 20140623
  Transmission Date: 20141212
  Serious: No
  Sender: FDA-Public Use
  Company Number: PHEH2013US026851

PATIENT
  Sex: Male

DRUGS (3)
  1. TASIGNA [Suspect]
     Indication: CHRONIC MYELOID LEUKAEMIA
     Dosage: 150 MG, Q12H
     Route: 048
     Dates: start: 20130508, end: 20130605
  2. TASIGNA [Suspect]
     Dosage: UNK UKN, UNK
     Dates: start: 201401
  3. SPIRONOLACTONE [Concomitant]
     Dosage: UNK UKN, UNK

REACTIONS (2)
  - Diarrhoea [Unknown]
  - Decreased appetite [Unknown]
